FAERS Safety Report 10050530 (Version 2)
Quarter: 2018Q1

REPORT INFORMATION
  Report Type: Spontaneous
  Country: US (occurrence: US)
  Receive Date: 20140401
  Receipt Date: 20180119
  Transmission Date: 20180508
  Serious: No
  Sender: FDA-Public Use
  Company Number: US-ASTRAZENECA-2013SE78291

PATIENT
  Age: 58 Year
  Sex: Male
  Weight: 68 kg

DRUGS (2)
  1. NEXIUM [Suspect]
     Active Substance: ESOMEPRAZOLE MAGNESIUM
     Indication: GASTROOESOPHAGEAL REFLUX DISEASE
     Dosage: GENERIC
     Route: 065
  2. NEXIUM [Suspect]
     Active Substance: ESOMEPRAZOLE MAGNESIUM
     Indication: GASTROOESOPHAGEAL REFLUX DISEASE
     Route: 048
     Dates: start: 2003

REACTIONS (6)
  - Muscle twitching [Unknown]
  - Drug ineffective [Unknown]
  - Discomfort [Unknown]
  - Arthralgia [Unknown]
  - Paraesthesia [Unknown]
  - Hypoaesthesia oral [Unknown]
